FAERS Safety Report 22107894 (Version 7)
Quarter: 2023Q4

REPORT INFORMATION
  Report Type: Spontaneous
  Country: US (occurrence: US)
  Receive Date: 20230317
  Receipt Date: 20231114
  Transmission Date: 20240109
  Serious: Yes (Other)
  Sender: FDA-Public Use
  Company Number: US-BRISTOL-MYERS SQUIBB COMPANY-2023-037919

PATIENT
  Age: 88 Year
  Sex: Female

DRUGS (2)
  1. LENALIDOMIDE [Suspect]
     Active Substance: LENALIDOMIDE
     Indication: 5q minus syndrome
     Dosage: FREQUENCY: TAKE 1 CAPSULE BY MOUTH WHOLE WITH WATER, WITH OR WITHOUT FOOD AT THE SAME TIME DAILY ON
     Route: 048
     Dates: start: 20220224
  2. LENALIDOMIDE [Suspect]
     Active Substance: LENALIDOMIDE
     Dosage: FREQUENCY: TAKE 1 CAPSULE BY MOUTH WHOLE WITH WATER, WITH OR WITHOUT FOOD AT THE SAME TIME DAILY ON
     Route: 048
     Dates: start: 20221025

REACTIONS (8)
  - Contusion [Not Recovered/Not Resolved]
  - Product dose omission issue [Recovered/Resolved]
  - Irritability [Unknown]
  - Gait inability [Unknown]
  - Tremor [Unknown]
  - Lymphoedema [Not Recovered/Not Resolved]
  - Off label use [Unknown]
  - Sarcoidosis [Not Recovered/Not Resolved]
